FAERS Safety Report 9693081 (Version 2)
Quarter: 2013Q4

REPORT INFORMATION
  Report Type: Spontaneous
  Country: BR (occurrence: BR)
  Receive Date: 20131118
  Receipt Date: 20131120
  Transmission Date: 20140711
  Serious: Yes (Death, Other)
  Sender: FDA-Public Use
  Company Number: BR-JNJFOC-20131108238

PATIENT
  Age: 86 Year
  Sex: Female
  Weight: 62 kg

DRUGS (7)
  1. XARELTO [Suspect]
     Indication: CEREBROVASCULAR ACCIDENT PROPHYLAXIS
     Route: 048
     Dates: start: 201210
  2. XARELTO [Suspect]
     Indication: TRANSIENT ISCHAEMIC ATTACK
     Route: 048
     Dates: start: 201210
  3. XARELTO [Suspect]
     Indication: ATRIAL FIBRILLATION
     Route: 048
     Dates: start: 201210
  4. EXELON [Concomitant]
     Indication: DEMENTIA ALZHEIMER^S TYPE
     Route: 062
  5. LOSARTAN [Concomitant]
     Indication: HYPERTENSION
     Route: 065
  6. CONCOR [Concomitant]
     Indication: HYPERTENSION
     Route: 065
  7. LASIX [Concomitant]
     Indication: HYPERTENSION
     Route: 065

REACTIONS (3)
  - Death [Fatal]
  - Mesenteric artery embolism [Unknown]
  - Off label use [Unknown]
